FAERS Safety Report 15794216 (Version 5)
Quarter: 2021Q3

REPORT INFORMATION
  Report Type: Report from Study
  Country: JP (occurrence: JP)
  Receive Date: 20190107
  Receipt Date: 20210702
  Transmission Date: 20211014
  Serious: Yes (Death, Other)
  Sender: FDA-Public Use
  Company Number: JP-PFIZER INC-2018520618

PATIENT
  Age: 63 Year
  Sex: Female
  Weight: 51.5 kg

DRUGS (5)
  1. BESPONSA [Suspect]
     Active Substance: INOTUZUMAB OZOGAMICIN
     Dosage: 0.5 MG/M2, 1X/DAY (2ND DOSE OF THE FIRST CYCLE)
     Route: 041
     Dates: start: 20181221, end: 20181221
  2. BESPONSA [Suspect]
     Active Substance: INOTUZUMAB OZOGAMICIN
     Dosage: 0.5 MG/M2, 1X/DAY (1ST DOSE OF THE SECOND CYCLE)
     Route: 041
     Dates: start: 20190122, end: 20190122
  3. BESPONSA [Suspect]
     Active Substance: INOTUZUMAB OZOGAMICIN
     Indication: ACUTE LYMPHOCYTIC LEUKAEMIA RECURRENT
     Dosage: 0.8 MG/M2, 1X/DAY (1ST DOSE OF THE FIRST CYCLE)
     Route: 041
     Dates: start: 20181214, end: 20181214
  4. BESPONSA [Suspect]
     Active Substance: INOTUZUMAB OZOGAMICIN
     Dosage: 0.5 MG/M2, 1X/DAY (2ND DOSE OF THE SECOND CYCLE)
     Route: 041
     Dates: start: 20190129, end: 20190129
  5. BESPONSA [Suspect]
     Active Substance: INOTUZUMAB OZOGAMICIN
     Dosage: 0.5 MG/M2, 1X/DAY (3RD DOSE OF THE FIRST CYCLE)
     Route: 041
     Dates: start: 20181228, end: 20181228

REACTIONS (5)
  - Death [Fatal]
  - Ventricular arrhythmia [Recovered/Resolved]
  - Altered state of consciousness [Recovered/Resolved]
  - Pyrexia [Recovered/Resolved]
  - Hyperammonaemia [Not Recovered/Not Resolved]

NARRATIVE: CASE EVENT DATE: 20181214
